FAERS Safety Report 5301422-7 (Version None)
Quarter: 2007Q2

REPORT INFORMATION
  Report Type: 
  Country: None (occurrence: None)
  Receive Date: 20070412
  Receipt Date: 20070402
  Transmission Date: 20071010
  Serious: Yes (Death)
  Sender: FDA-Public Use
  Company Number: 2007BI006623

PATIENT
  Age: 38 Year
  Sex: Female

DRUGS (5)
  1. NATALIZUMAB [Suspect]
     Indication: MULTIPLE SCLEROSIS
     Dosage: 200 MG; QM; IV
     Route: 042
     Dates: start: 20061023, end: 20070312
  2. PAXIL [Concomitant]
  3. ZANAFLEX [Concomitant]
  4. DETROL [Concomitant]
  5. JUICE PLUS [Concomitant]

REACTIONS (5)
  - ACCIDENTAL DEATH [None]
  - DROWNING [None]
  - EXCORIATION [None]
  - FALL [None]
  - HEAD INJURY [None]
